FAERS Safety Report 6484480-6 (Version None)
Quarter: 2009Q4

REPORT INFORMATION
  Report Type: 
  Country: None (occurrence: None)
  Receive Date: 20091209
  Receipt Date: 20091130
  Transmission Date: 20100525
  Serious: Yes (Other)
  Sender: FDA-Public Use
  Company Number: PHHY2009BR53150

PATIENT
  Age: 84 Year
  Sex: Female
  Weight: 59 kg

DRUGS (1)
  1. FORASEQ [Suspect]
     Dosage: ONE INHALATION OF EACH ACTIVE SUBSTANCE TWICE DAILY
     Dates: start: 19990101

REACTIONS (2)
  - BLOOD CHOLESTEROL INCREASED [None]
  - DEMENTIA ALZHEIMER'S TYPE [None]
